FAERS Safety Report 4986082-7 (Version None)
Quarter: 2006Q2

REPORT INFORMATION
  Report Type: 
  Country: None (occurrence: None)
  Receive Date: 20060428
  Receipt Date: 20060421
  Transmission Date: 20061013
  Serious: Yes (Other)
  Sender: FDA-Public Use
  Company Number: US-JNJFOC-20060404790

PATIENT
  Sex: Male
  Weight: 71.67 kg

DRUGS (6)
  1. TYLENOL (CAPLET) [Suspect]
  2. TYLENOL (CAPLET) [Suspect]
     Dosage: ^NOT MORE THAN THE RECOMMENDED DOSE^
  3. ALKA-SELTZER EFFERVESCENT COLD CHERRY BURST [Suspect]
     Route: 048
  4. ALKA-SELTZER EFFERVESCENT COLD CHERRY BURST [Suspect]
     Route: 048
  5. ALKA-SELTZER EFFERVESCENT COLD CHERRY BURST [Suspect]
     Route: 048
  6. BLOOD PRESSURE MEDICATION [Concomitant]

REACTIONS (3)
  - ANOREXIA [None]
  - BLOOD URINE PRESENT [None]
  - HEAD DISCOMFORT [None]
